FAERS Safety Report 14649618 (Version 1)
Quarter: 2018Q1

REPORT INFORMATION
  Report Type: Spontaneous
  Country: JP (occurrence: JP)
  Receive Date: 20180316
  Receipt Date: 20180316
  Transmission Date: 20180509
  Serious: Yes (Other)
  Sender: FDA-Public Use
  Company Number: JP-BAYER-2018-043487

PATIENT
  Sex: Female

DRUGS (2)
  1. YAZ [Suspect]
     Active Substance: DROSPIRENONE\ETHINYL ESTRADIOL
     Indication: ENDOMETRIOSIS
     Dosage: 1 DF, QD
     Route: 048
  2. YAZ [Suspect]
     Active Substance: DROSPIRENONE\ETHINYL ESTRADIOL
     Indication: ENDOMETRIOSIS
     Dosage: 1 DF, QD
     Route: 048

REACTIONS (7)
  - Menstrual disorder [Unknown]
  - Oedema peripheral [Unknown]
  - Off label use [Unknown]
  - Pain in extremity [Unknown]
  - Depressed level of consciousness [Unknown]
  - Rash erythematous [Unknown]
  - Product use in unapproved indication [Unknown]
